FAERS Safety Report 5067747-8 (Version None)
Quarter: 2006Q3

REPORT INFORMATION
  Report Type: 
  Country: None (occurrence: None)
  Receive Date: 20060802
  Receipt Date: 20060731
  Transmission Date: 20061208
  Serious: Yes (Hospitalization)
  Sender: FDA-Public Use
  Company Number: DE-AVENTIS-200612242DE

PATIENT
  Age: 62 Year
  Sex: Female
  Weight: 76 kg

DRUGS (4)
  1. DOCETAXEL [Suspect]
     Indication: BREAST CANCER
     Route: 042
     Dates: start: 20060404, end: 20060404
  2. FORTECORTIN [Concomitant]
     Route: 042
     Dates: start: 20060404, end: 20060404
  3. ZOFRAN [Concomitant]
     Indication: NAUSEA
     Route: 042
     Dates: start: 20060404, end: 20060404
  4. ZOFRAN [Concomitant]
     Route: 048
     Dates: start: 20060404, end: 20060404

REACTIONS (1)
  - RETINAL DETACHMENT [None]
